FAERS Safety Report 16001368 (Version 1)
Quarter: 2019Q1

REPORT INFORMATION
  Report Type: Spontaneous
  Country: US (occurrence: US)
  Receive Date: 20190224
  Receipt Date: 20190224
  Transmission Date: 20190418
  Serious: No
  Sender: FDA-Public Use
  Company Number: None

PATIENT
  Age: 49 Year
  Sex: Male
  Weight: 92.7 kg

DRUGS (4)
  1. OSELTAMIVIR PHOSPHATE. [Suspect]
     Active Substance: OSELTAMIVIR PHOSPHATE
     Indication: INFLUENZA
     Dosage: ?          QUANTITY:1 TABLET(S);?
     Route: 048
     Dates: start: 20190218, end: 20190219
  2. HCTZ/LISINOPRIL [Concomitant]
     Active Substance: HYDROCHLOROTHIAZIDE\LISINOPRIL
  3. LOW-DOSE ASPRIN [Concomitant]
  4. MEGARED KRILL OIL [Concomitant]

REACTIONS (4)
  - Insomnia [None]
  - Abnormal dreams [None]
  - Panic attack [None]
  - Paranoia [None]

NARRATIVE: CASE EVENT DATE: 20190220
